FAERS Safety Report 24383084 (Version 1)
Quarter: 2024Q4

REPORT INFORMATION
  Report Type: Other
  Country: US (occurrence: US)
  Receive Date: 20241001
  Receipt Date: 20241001
  Transmission Date: 20250114
  Serious: Yes (Hospitalization, Other)
  Sender: PRAXAIR
  Company Number: US-Praxair Distribution, Inc.-2162239

PATIENT
  Age: 6 Decade
  Sex: Male

DRUGS (4)
  1. NOXIVENT [Suspect]
     Active Substance: NITRIC OXIDE
     Indication: Right ventricular dysfunction
  2. NOXIVENT [Suspect]
     Active Substance: NITRIC OXIDE
     Indication: Pulmonary vascular resistance abnormality
  3. OXYGEN [Concomitant]
     Active Substance: OXYGEN
  4. INSULIN NOS [Concomitant]
     Active Substance: INSULIN NOS

REACTIONS (3)
  - Methaemoglobinaemia [Recovered/Resolved]
  - Haemolysis [Recovered/Resolved]
  - Haemolytic anaemia [Recovered/Resolved]
